FAERS Safety Report 8418363-9 (Version None)
Quarter: 2012Q2

REPORT INFORMATION
  Report Type: 
  Country: None (occurrence: None)
  Receive Date: 20120607
  Receipt Date: 20120601
  Transmission Date: 20120825
  Serious: Yes (Death)
  Sender: FDA-Public Use
  Company Number: CL-PFIZER INC-2012133837

PATIENT
  Sex: Male

DRUGS (2)
  1. VORICONAZOLE [Suspect]
     Route: 042
  2. COTRIM [Concomitant]
     Dosage: UNK

REACTIONS (5)
  - ARRHYTHMIA [None]
  - ELECTROCARDIOGRAM ABNORMAL [None]
  - EXTRASYSTOLES [None]
  - VENTRICULAR TACHYCARDIA [None]
  - ELECTROCARDIOGRAM QT PROLONGED [None]
